FAERS Safety Report 12497190 (Version 1)
Quarter: 2016Q2

REPORT INFORMATION
  Report Type: Spontaneous
  Country: GB (occurrence: GB)
  Receive Date: 20160624
  Receipt Date: 20160624
  Transmission Date: 20160815
  Serious: Yes (Other)
  Sender: FDA-Public Use
  Company Number: GB-APOTEX-2016AP009331

PATIENT

DRUGS (11)
  1. ATENOLOL. [Concomitant]
     Active Substance: ATENOLOL
     Indication: HYPERTENSION
     Dates: start: 2003
  2. PAROXETINE. [Suspect]
     Active Substance: PAROXETINE
     Indication: PRODUCT USED FOR UNKNOWN INDICATION
     Dosage: 30 MG, 1D
     Route: 065
     Dates: start: 19991201
  3. TAMOXIFEN [Concomitant]
     Active Substance: TAMOXIFEN
     Indication: PRODUCT USED FOR UNKNOWN INDICATION
     Dates: start: 1996, end: 1998
  4. TEMAZEPAM. [Concomitant]
     Active Substance: TEMAZEPAM
     Indication: PRODUCT USED FOR UNKNOWN INDICATION
     Dates: start: 2000
  5. METFORMIN [Concomitant]
     Active Substance: METFORMIN HYDROCHLORIDE
     Indication: WEIGHT DECREASED
     Dates: start: 2005
  6. ATENOLOL. [Concomitant]
     Active Substance: ATENOLOL
     Indication: PALPITATIONS
  7. ZOPICLONE [Concomitant]
     Active Substance: ZOPICLONE
     Indication: POOR QUALITY SLEEP
     Dates: start: 2000
  8. OMEPRAZOLE. [Concomitant]
     Active Substance: OMEPRAZOLE
     Indication: HIATUS HERNIA
     Dates: start: 2000
  9. HRT [Concomitant]
     Active Substance: UNSPECIFIED INGREDIENT
     Indication: PRODUCT USED FOR UNKNOWN INDICATION
     Dates: start: 200206, end: 200207
  10. ORLISTAT [Concomitant]
     Active Substance: ORLISTAT
     Indication: WEIGHT DECREASED
     Dates: start: 2005
  11. PAROXETINE. [Suspect]
     Active Substance: PAROXETINE
     Dosage: 20 MG, UNK
     Route: 065
     Dates: start: 20020711, end: 20030720

REACTIONS (29)
  - Suicide attempt [Unknown]
  - Confusional state [Unknown]
  - Influenza like illness [Unknown]
  - Sleep disorder [Unknown]
  - Rash [Unknown]
  - Dizziness [Unknown]
  - Sensory loss [Unknown]
  - Dysuria [Unknown]
  - Fatigue [Unknown]
  - Palpitations [Unknown]
  - Nausea [Unknown]
  - Vomiting [Unknown]
  - Abdominal pain [Unknown]
  - Pain in extremity [Unknown]
  - Drug withdrawal syndrome [Unknown]
  - Disturbance in attention [Unknown]
  - Vertigo [Unknown]
  - Paraesthesia [Unknown]
  - Suicidal ideation [Unknown]
  - Nightmare [Unknown]
  - Anxiety [Unknown]
  - Depression [Unknown]
  - Agitation [Unknown]
  - Hyperhidrosis [Unknown]
  - Tremor [Unknown]
  - Diabetic neuropathy [Unknown]
  - Oedema peripheral [Unknown]
  - Stress [Unknown]
  - Memory impairment [Unknown]

NARRATIVE: CASE EVENT DATE: 20020711
